FAERS Safety Report 8975561 (Version 1)
Quarter: 2012Q4

REPORT INFORMATION
  Report Type: 
  Country: US (occurrence: US)
  Receive Date: 20121219
  Receipt Date: 20121219
  Transmission Date: 20130627
  Serious: No
  Sender: FDA-Public Use
  Company Number: US-PFIZER INC-2012318418

PATIENT
  Age: 74 Year
  Sex: Female
  Weight: 104 kg

DRUGS (5)
  1. PREMARIN [Suspect]
     Indication: HORMONE REPLACEMENT THERAPY
     Dosage: 45 mg, UNK
     Dates: start: 1973
  2. PREMARIN [Suspect]
     Indication: MOOD ALTERED
     Dosage: UNK
     Dates: end: 2012
  3. LEVOTHYROXINE [Concomitant]
     Indication: THYROID DISORDER
     Dosage: 100 ug, daily
  4. PRILOSEC [Concomitant]
     Indication: GASTROOESOPHAGEAL REFLUX DISEASE
     Dosage: 20 mg, daily
  5. LISINOPRIL [Concomitant]
     Indication: HYPERTENSION
     Dosage: 10 mg, 2x/day

REACTIONS (6)
  - Mood altered [Recovered/Resolved]
  - Hot flush [Recovered/Resolved]
  - Insomnia [Recovered/Resolved]
  - Irritability [Recovered/Resolved]
  - Hypertrichosis [Recovered/Resolved]
  - Blood oestrogen decreased [Unknown]
